FAERS Safety Report 8995176 (Version 3)
Quarter: 2013Q2

REPORT INFORMATION
  Report Type: Spontaneous
  Country: US (occurrence: US)
  Receive Date: 20130102
  Receipt Date: 20130530
  Transmission Date: 20140414
  Serious: Yes (Hospitalization, Disabling, Other)
  Sender: FDA-Public Use
  Company Number: US-009507513-1201USA00334

PATIENT
  Sex: Female

DRUGS (2)
  1. FOSAMAX [Suspect]
     Indication: OSTEOPOROSIS
     Dosage: 10 MG, QD
     Route: 048
     Dates: start: 1996, end: 200605
  2. FOSAMAX [Suspect]
     Indication: OSTEOPENIA
     Dosage: 70 MG, QW
     Route: 048
     Dates: end: 200605

REACTIONS (15)
  - Femur fracture [Not Recovered/Not Resolved]
  - Low turnover osteopathy [Not Recovered/Not Resolved]
  - Colon cancer [Unknown]
  - Open reduction of fracture [Unknown]
  - Packed red blood cell transfusion [Unknown]
  - Haemoglobin decreased [Unknown]
  - Myocardial infarction [Unknown]
  - Joint arthroplasty [Unknown]
  - Hypertension [Unknown]
  - Hypercholesterolaemia [Unknown]
  - Arteriosclerosis [Unknown]
  - Gout [Unknown]
  - Osteoarthritis [Unknown]
  - Joint injury [Unknown]
  - Gastrooesophageal reflux disease [Unknown]
